FAERS Safety Report 11401800 (Version 8)
Quarter: 2016Q2

REPORT INFORMATION
  Report Type: Report from Study
  Country: US (occurrence: US)
  Receive Date: 20150821
  Receipt Date: 20160621
  Transmission Date: 20160815
  Serious: No
  Sender: FDA-Public Use
  Company Number: PHHY2014US084082

PATIENT
  Age: 43 Year
  Sex: Female

DRUGS (7)
  1. MULTI VITAMIN [Concomitant]
     Active Substance: VITAMINS
     Indication: PROPHYLAXIS
     Dosage: 1 DF, TID
     Route: 005
     Dates: start: 20140729
  2. FLUCONAZOLE. [Concomitant]
     Active Substance: FLUCONAZOLE
     Indication: FUNGAL INFECTION
     Dosage: 2 DF, QD
     Route: 065
     Dates: start: 20150216, end: 20150216
  3. MENOSENSE [Concomitant]
     Indication: HOT FLUSH
     Dosage: 2 DF, BID
     Route: 065
     Dates: start: 20140729
  4. LIDODERM [Concomitant]
     Active Substance: LIDOCAINE
     Indication: POST HERPETIC NEURALGIA
     Dosage: 5 %, UNK
     Route: 065
     Dates: start: 20150420
  5. SOLU-MEDROL [Concomitant]
     Active Substance: METHYLPREDNISOLONE SODIUM SUCCINATE
     Indication: MULTIPLE SCLEROSIS RELAPSE
     Dosage: 500 MG, UNK
     Route: 065
     Dates: start: 20150210, end: 20150212
  6. GILENYA [Suspect]
     Active Substance: FINGOLIMOD HYDROCHLORIDE
     Indication: MULTIPLE SCLEROSIS
     Dosage: UNK UNK, QD
     Route: 048
  7. MENOSENSE [Concomitant]
     Indication: NIGHT SWEATS

REACTIONS (12)
  - Lentigo [Not Recovered/Not Resolved]
  - Seborrhoeic keratosis [Not Recovered/Not Resolved]
  - Headache [Recovered/Resolved]
  - Headache [Recovered/Resolved]
  - Haemangioma [Not Recovered/Not Resolved]
  - Melanocytic naevus [Not Recovered/Not Resolved]
  - Fibrous histiocytoma [Not Recovered/Not Resolved]
  - Acne [Not Recovered/Not Resolved]
  - Diarrhoea [Recovered/Resolved]
  - Urinary incontinence [Recovered/Resolved]
  - Post inflammatory pigmentation change [Not Recovered/Not Resolved]
  - Xerosis [Not Recovered/Not Resolved]

NARRATIVE: CASE EVENT DATE: 20140514
